FAERS Safety Report 9797886 (Version 1)
Quarter: 2014Q1

REPORT INFORMATION
  Report Type: Spontaneous
  Country: GB (occurrence: None)
  Receive Date: 20140102
  Receipt Date: 20140102
  Transmission Date: 20141002
  Serious: Yes (Death)
  Sender: FDA-Public Use
  Company Number: AMAG201300249

PATIENT
  Age: 68 Year
  Sex: Male

DRUGS (1)
  1. RIENSO [Suspect]
     Indication: IMAGING PROCEDURE
     Dosage: 13.6 ML (408 MG) SINGLE, INTRAVENOUS
     Route: 042
     Dates: start: 20130724, end: 20130724

REACTIONS (1)
  - Death [None]
